FAERS Safety Report 12951053 (Version 2)
Quarter: 2016Q4

REPORT INFORMATION
  Report Type: Spontaneous
  Country: NL (occurrence: NL)
  Receive Date: 20161117
  Receipt Date: 20161128
  Transmission Date: 20170207
  Serious: Yes (Hospitalization)
  Sender: FDA-Public Use
  Company Number: NL-TEVA-712123ACC

PATIENT
  Age: 55 Year
  Sex: Female
  Weight: 98 kg

DRUGS (3)
  1. CAPECITABINE TABLET FO 150MG [Concomitant]
     Active Substance: CAPECITABINE
     Dosage: 150 MILLIGRAM DAILY; 2 TIMES PER DAY 5 PIECE(S), EXTRA INFO: 4X500 MG +1X150 MG
     Route: 048
     Dates: start: 20161005
  2. OXALIPLATINE INFUUS [Suspect]
     Active Substance: OXALIPLATIN
     Indication: COLON CANCER
     Dosage: ONCE PER 3 WEEKS
     Route: 042
     Dates: start: 20161005
  3. CAPECITABINE TABLET FO 500MG [Concomitant]
     Active Substance: CAPECITABINE
     Dosage: 4000 MILLIGRAM DAILY; 2 TIMES PER DAY 5 PIECE(S), EXTRA INFO: 4X500 MG +1X150 MG
     Route: 048
     Dates: start: 20161005

REACTIONS (2)
  - Dizziness [Recovered/Resolved]
  - Gait disturbance [Recovered/Resolved]

NARRATIVE: CASE EVENT DATE: 20161026
